FAERS Safety Report 8503033-9 (Version None)
Quarter: 2012Q2

REPORT INFORMATION
  Report Type: 
  Country: None (occurrence: None)
  Receive Date: 20120629
  Receipt Date: 20120621
  Transmission Date: 20120825
  Serious: Yes (Hospitalization, Other)
  Sender: FDA-Public Use
  Company Number: 2012SP024147

PATIENT
  Age: 61 Year
  Sex: Female

DRUGS (2)
  1. RIBAVIRIN [Suspect]
     Indication: HEPATITIS C
     Dosage: UNK
     Dates: start: 20120316, end: 20120424
  2. PEGASYS [Suspect]
     Indication: HEPATITIS C
     Dates: start: 20120316, end: 20120424

REACTIONS (4)
  - DEHYDRATION [None]
  - ALOPECIA [None]
  - ANAEMIA [None]
  - NAUSEA [None]
